FAERS Safety Report 10040828 (Version 1)
Quarter: 2014Q1

REPORT INFORMATION
  Report Type: Report from Study
  Country: BR (occurrence: BR)
  Receive Date: 20140327
  Receipt Date: 20140327
  Transmission Date: 20141002
  Serious: Yes (Other)
  Sender: FDA-Public Use
  Company Number: BR-BAYER-2014-042418

PATIENT
  Age: 54 Year
  Sex: Female

DRUGS (3)
  1. NEXAVAR [Suspect]
     Indication: HEPATIC CANCER
     Dosage: 2 DF, QD
     Route: 048
     Dates: start: 201312
  2. OMEPRAZOL [Concomitant]
     Dosage: 2 DF, BID
     Route: 048
     Dates: start: 201312
  3. TRAMAL [Concomitant]
     Indication: SPINAL PAIN
     Dosage: UNK
     Route: 048

REACTIONS (13)
  - Urinary tract infection [Unknown]
  - Immunodeficiency [Not Recovered/Not Resolved]
  - Abdominal pain [Recovering/Resolving]
  - Diarrhoea [Not Recovered/Not Resolved]
  - Flatulence [Not Recovered/Not Resolved]
  - Nausea [Not Recovered/Not Resolved]
  - Palmar-plantar erythrodysaesthesia syndrome [Recovering/Resolving]
  - Dry skin [Recovering/Resolving]
  - Hypoaesthesia [Recovering/Resolving]
  - Skin hypertrophy [Recovering/Resolving]
  - Pain [Recovering/Resolving]
  - Joint swelling [Recovering/Resolving]
  - Skin wound [Recovering/Resolving]
